FAERS Safety Report 7392191-8 (Version None)
Quarter: 2011Q2

REPORT INFORMATION
  Report Type: 
  Country: None (occurrence: None)
  Receive Date: 20110404
  Receipt Date: 20110328
  Transmission Date: 20111010
  Serious: Yes (Other)
  Sender: FDA-Public Use
  Company Number: B0709453A

PATIENT
  Sex: Male

DRUGS (4)
  1. REQUIP [Suspect]
     Indication: PARKINSON'S DISEASE
     Route: 065
     Dates: start: 20080101
  2. AZILECT [Concomitant]
     Indication: PARKINSON'S DISEASE
     Route: 065
     Dates: start: 20100101
  3. TRIVASTAL [Concomitant]
     Indication: PARKINSON'S DISEASE
     Route: 065
     Dates: start: 20080101, end: 20100101
  4. STALEVO 100 [Concomitant]
     Indication: PARKINSON'S DISEASE
     Route: 065
     Dates: start: 20100101

REACTIONS (4)
  - GRANDIOSITY [None]
  - PATHOLOGICAL GAMBLING [None]
  - BIPOLAR DISORDER [None]
  - AGGRESSION [None]
